FAERS Safety Report 4709347-2 (Version None)
Quarter: 2005Q3

REPORT INFORMATION
  Report Type: 
  Country: None (occurrence: None)
  Receive Date: 20050706
  Receipt Date: 20050624
  Transmission Date: 20060218
  Serious: Yes (Life-Threatening, Hospitalization)
  Sender: FDA-Public Use
  Company Number: 2005US000820

PATIENT
  Age: 33 Year
  Sex: Female
  Weight: 50 kg

DRUGS (3)
  1. PROGRAF [Suspect]
     Indication: PROPHYLAXIS AGAINST TRANSPLANT REJECTION
     Dosage: 2.00 MG, BID, ORAL
     Route: 048
     Dates: end: 20050513
  2. SOLU-MEDROL [Concomitant]
  3. MYCOPHENOLATE MOFETIL (MYCOPHENOLATE MOFETIL) [Concomitant]

REACTIONS (7)
  - APHASIA [None]
  - ASTHENIA [None]
  - BRADYCARDIA [None]
  - DYSARTHRIA [None]
  - LEUKOENCEPHALOPATHY [None]
  - QUADRIPLEGIA [None]
  - RESPIRATORY FAILURE [None]
